FAERS Safety Report 23993447 (Version 2)
Quarter: 2024Q3

REPORT INFORMATION
  Report Type: Spontaneous
  Country: JP (occurrence: JP)
  Receive Date: 20240620
  Receipt Date: 20240725
  Transmission Date: 20241017
  Serious: Yes (Death, Life-Threatening, Hospitalization, Other)
  Sender: BRISTOL MYERS SQUIBB
  Company Number: JP-BRISTOL-MYERS SQUIBB COMPANY-2024-099317

PATIENT
  Age: 67 Year
  Sex: Male

DRUGS (12)
  1. NIVOLUMAB [Suspect]
     Active Substance: NIVOLUMAB
     Indication: Lung adenocarcinoma stage IV
     Dates: start: 202109, end: 202110
  2. NIVOLUMAB [Suspect]
     Active Substance: NIVOLUMAB
     Dates: start: 2022, end: 2022
  3. IPILIMUMAB [Suspect]
     Active Substance: IPILIMUMAB
     Indication: Lung adenocarcinoma stage IV
     Dates: start: 202109, end: 202110
  4. IPILIMUMAB [Suspect]
     Active Substance: IPILIMUMAB
     Dates: start: 2022, end: 2022
  5. DOCETAXEL [Suspect]
     Active Substance: DOCETAXEL\DOCETAXEL ANHYDROUS
     Indication: Metastases to lung
     Dosage: ONE DOSE
     Dates: start: 2022, end: 2022
  6. DOCETAXEL [Suspect]
     Active Substance: DOCETAXEL\DOCETAXEL ANHYDROUS
     Indication: Malignant neoplasm progression
  7. DOCETAXEL [Suspect]
     Active Substance: DOCETAXEL\DOCETAXEL ANHYDROUS
     Indication: Lung adenocarcinoma stage IV
  8. TS-1 [Suspect]
     Active Substance: GIMERACIL\OTERACIL POTASSIUM\TEGAFUR
     Indication: Metastases to lung
     Dates: start: 2022, end: 2022
  9. TS-1 [Suspect]
     Active Substance: GIMERACIL\OTERACIL POTASSIUM\TEGAFUR
     Indication: Lung adenocarcinoma stage IV
  10. TS-1 [Suspect]
     Active Substance: GIMERACIL\OTERACIL POTASSIUM\TEGAFUR
     Indication: Malignant neoplasm progression
  11. METHYLPREDNISOLONE [Suspect]
     Active Substance: METHYLPREDNISOLONE
     Indication: Pneumonia
     Dates: start: 2022, end: 2022
  12. PREDNISOLONE [Suspect]
     Active Substance: PREDNISOLONE
     Indication: Pneumonia
     Dates: start: 2022, end: 2022

REACTIONS (2)
  - Pulmonary tuberculosis [Fatal]
  - Respiratory failure [Fatal]

NARRATIVE: CASE EVENT DATE: 20220101
